FAERS Safety Report 6493376-5 (Version None)
Quarter: 2009Q4

REPORT INFORMATION
  Report Type: 
  Country: None (occurrence: None)
  Receive Date: 20091209
  Receipt Date: 20091203
  Transmission Date: 20100525
  Serious: Yes (Death, Hospitalization)
  Sender: FDA-Public Use
  Company Number: TPA2009A03916

PATIENT
  Age: 70 Year
  Sex: Male
  Weight: 108.3 kg

DRUGS (4)
  1. ULORIC [Suspect]
     Indication: GOUT
     Dosage: 80 MG, 1 IN 1 D, PER ORAL; 40 MG, 1 IN 1 D, PER ORAL
     Route: 048
     Dates: start: 20090915, end: 20090923
  2. ULORIC [Suspect]
     Indication: GOUT
     Dosage: 80 MG, 1 IN 1 D, PER ORAL; 40 MG, 1 IN 1 D, PER ORAL
     Route: 048
     Dates: start: 20090923, end: 20090930
  3. PLAVIX [Concomitant]
  4. ZETIA [Concomitant]

REACTIONS (3)
  - CONDITION AGGRAVATED [None]
  - HEPATIC FAILURE [None]
  - OESOPHAGEAL HAEMORRHAGE [None]
